FAERS Safety Report 16478033 (Version 1)
Quarter: 2019Q2

REPORT INFORMATION
  Report Type: Spontaneous
  Country: US (occurrence: US)
  Receive Date: 20190626
  Receipt Date: 20190626
  Transmission Date: 20190711
  Serious: No
  Sender: FDA-Public Use
  Company Number: US-TEVA-2019-US-1068227

PATIENT
  Sex: Female
  Weight: 52 kg

DRUGS (1)
  1. AUSTEDO [Suspect]
     Active Substance: DEUTETRABENAZINE
     Dosage: 24 MILLIGRAM DAILY; STARTED 1.5 YEARS AGO
     Route: 048

REACTIONS (2)
  - Flat affect [Unknown]
  - Loss of personal independence in daily activities [Unknown]
